FAERS Safety Report 5022024-6 (Version None)
Quarter: 2006Q2

REPORT INFORMATION
  Report Type: 
  Country: None (occurrence: None)
  Receive Date: 20060609
  Receipt Date: 20050728
  Transmission Date: 20061013
  Serious: Yes (Death)
  Sender: FDA-Public Use
  Company Number: JP-SP-2005-01442

PATIENT
  Age: 78 Year
  Sex: Male

DRUGS (1)
  1. IMMUCYST [Suspect]
     Indication: URETERIC CANCER
     Route: 043
     Dates: end: 20050724

REACTIONS (2)
  - SEPTIC SHOCK [None]
  - STAPHYLOCOCCAL INFECTION [None]
